FAERS Safety Report 24856597 (Version 1)
Quarter: 2025Q1

REPORT INFORMATION
  Report Type: Spontaneous
  Country: US (occurrence: None)
  Receive Date: 20250116
  Receipt Date: 20250116
  Transmission Date: 20250408
  Serious: Yes (Other)
  Sender: FDA-CTU
  Company Number: None

PATIENT
  Age: 57 Year
  Sex: Female
  Weight: 68.4 kg

DRUGS (10)
  1. SEROQUEL [Suspect]
     Active Substance: QUETIAPINE FUMARATE
     Indication: Borderline personality disorder
     Dates: start: 20241001, end: 20241205
  2. TRAZODONE [Concomitant]
     Active Substance: TRAZODONE HYDROCHLORIDE
  3. LEXAPRO [Concomitant]
     Active Substance: ESCITALOPRAM OXALATE
  4. ATIVAN [Concomitant]
     Active Substance: LORAZEPAM
  5. LAMOTRIGINE [Concomitant]
     Active Substance: LAMOTRIGINE
  6. MELOXICAM [Concomitant]
     Active Substance: MELOXICAM
  7. MULTI-VITAMIN [Concomitant]
     Active Substance: .ALPHA.-TOCOPHEROL ACETATE, DL-\ASCORBIC ACID\CYANOCOBALAMIN\FLUORIDE ION\FOLIC ACID\NIACIN\PYRIDOXI
  8. VITAMIN B COMPLEX [Concomitant]
     Active Substance: CYANOCOBALAMIN\DEXPANTHENOL\NIACINAMIDE\PYRIDOXINE HYDROCHLORIDE\RIBOFLAVIN 5^-PHOSPHATE SODIUM\THIA
  9. VITAMIN D [Concomitant]
     Active Substance: VITAMIN D NOS
  10. FOLATE SODIUM [Concomitant]
     Active Substance: FOLATE SODIUM

REACTIONS (7)
  - Suicidal ideation [None]
  - Dizziness [None]
  - Anxiety [None]
  - Emotional disorder [None]
  - Syncope [None]
  - Fall [None]
  - Rib fracture [None]

NARRATIVE: CASE EVENT DATE: 20241018
